FAERS Safety Report 13796262 (Version 1)
Quarter: 2017Q3

REPORT INFORMATION
  Report Type: Spontaneous
  Country: JP (occurrence: JP)
  Receive Date: 20170726
  Receipt Date: 20170726
  Transmission Date: 20171127
  Serious: Yes (Hospitalization)
  Sender: FDA-Public Use
  Company Number: PHJP2017JP023349

PATIENT
  Sex: Male

DRUGS (2)
  1. LDK378 [Suspect]
     Active Substance: CERITINIB
     Dosage: UNK
     Route: 048
  2. LDK378 [Suspect]
     Active Substance: CERITINIB
     Indication: ADENOCARCINOMA
     Dosage: UNK
     Route: 048

REACTIONS (4)
  - Thirst [Unknown]
  - Malaise [Unknown]
  - Hyperglycaemic hyperosmolar nonketotic syndrome [Unknown]
  - Decreased appetite [Unknown]
